FAERS Safety Report 9927779 (Version 1)
Quarter: 2014Q1

REPORT INFORMATION
  Report Type: Report from Study
  Country: US (occurrence: US)
  Receive Date: 20140227
  Receipt Date: 20140227
  Transmission Date: 20141002
  Serious: Yes (Other)
  Sender: FDA-Public Use
  Company Number: US-ROCHE-1313549

PATIENT
  Sex: Male

DRUGS (9)
  1. AVASTIN [Suspect]
     Indication: AGE-RELATED MACULAR DEGENERATION
     Dosage: OD X 3
     Route: 065
     Dates: start: 2007
  2. AVASTIN [Suspect]
     Indication: CHOROIDAL NEOVASCULARISATION
  3. LUCENTIS [Suspect]
     Indication: AGE-RELATED MACULAR DEGENERATION
     Dosage: IN RIGHT EYE
     Route: 050
     Dates: start: 200802
  4. KENALOG (UNITED STATES) [Concomitant]
     Dosage: X 1
     Route: 050
     Dates: start: 200802, end: 200802
  5. ASPIRIN [Concomitant]
     Route: 065
  6. VIGAMOX [Concomitant]
     Dosage: 1 DROP QID X 3 DAYS RIGHT EYE
     Route: 065
  7. TOBRADEX [Concomitant]
     Dosage: TO TREATED EYE QID X 3 DAYS
     Route: 047
     Dates: start: 20110517
  8. ERYTHROMYCIN [Concomitant]
     Dosage: X 1 IN OFFICE
     Route: 065
  9. NIFEDIPINE ER [Concomitant]

REACTIONS (14)
  - Cystoid macular oedema [Unknown]
  - Cutis laxa [Unknown]
  - Retinal depigmentation [Unknown]
  - Detachment of retinal pigment epithelium [Unknown]
  - Subretinal fibrosis [Unknown]
  - Macular degeneration [Unknown]
  - Intraocular lens implant [Unknown]
  - Cataract [Unknown]
  - Vitreous floaters [Unknown]
  - Retinal neovascularisation [Unknown]
  - Hyalosis asteroid [Unknown]
  - Conjunctival haemorrhage [Unknown]
  - Ocular vascular disorder [Unknown]
  - Off label use [Unknown]
